FAERS Safety Report 11579264 (Version 2)
Quarter: 2015Q4

REPORT INFORMATION
  Report Type: Spontaneous
  Country: US (occurrence: US)
  Receive Date: 20150930
  Receipt Date: 20151026
  Transmission Date: 20160304
  Serious: No
  Sender: FDA-Public Use
  Company Number: US-PFIZER INC-2015326253

PATIENT
  Age: 48 Year
  Sex: Female
  Weight: 86.17 kg

DRUGS (3)
  1. LYRICA [Suspect]
     Active Substance: PREGABALIN
     Indication: NEURALGIA
     Dosage: 50 ?G, 4X/DAY
     Route: 048
     Dates: start: 201505
  2. TRAMADOL. [Suspect]
     Active Substance: TRAMADOL
     Indication: PAIN
     Dosage: UNK
  3. INSULIN [Concomitant]
     Active Substance: INSULIN NOS
     Dosage: UNK

REACTIONS (3)
  - Weight fluctuation [Unknown]
  - Pain [Not Recovered/Not Resolved]
  - Incorrect dose administered [Unknown]
